FAERS Safety Report 15489513 (Version 2)
Quarter: 2018Q4

REPORT INFORMATION
  Report Type: Report from Study
  Country: US (occurrence: US)
  Receive Date: 20181011
  Receipt Date: 20181029
  Transmission Date: 20190205
  Serious: Yes (Hospitalization)
  Sender: FDA-Public Use
  Company Number: US-JNJFOC-20181015864

PATIENT
  Sex: Female

DRUGS (18)
  1. LISINOPRIL. [Concomitant]
     Active Substance: LISINOPRIL
  2. CLARITIN [Concomitant]
     Active Substance: LORATADINE
  3. PRAVASTATIN. [Concomitant]
     Active Substance: PRAVASTATIN
  4. TYLENOL [Concomitant]
     Active Substance: ACETAMINOPHEN
     Route: 065
  5. FOSAMAX [Concomitant]
     Active Substance: ALENDRONATE SODIUM
  6. CARAFATE [Concomitant]
     Active Substance: SUCRALFATE
  7. COREG [Concomitant]
     Active Substance: CARVEDILOL
  8. IMBRUVICA [Suspect]
     Active Substance: IBRUTINIB
     Indication: B-CELL SMALL LYMPHOCYTIC LYMPHOMA
     Dosage: 280 MG, QD
     Route: 048
     Dates: start: 20180723, end: 2018
  9. MORPHINE [Concomitant]
     Active Substance: MORPHINE
  10. GABAPENTIN. [Concomitant]
     Active Substance: GABAPENTIN
  11. ALBUTEROL. [Concomitant]
     Active Substance: ALBUTEROL
  12. CYMBALTA [Concomitant]
     Active Substance: DULOXETINE HYDROCHLORIDE
  13. FLUTICASONE. [Concomitant]
     Active Substance: FLUTICASONE
  14. ROPINIROLE. [Concomitant]
     Active Substance: ROPINIROLE
  15. KLOR-CON [Concomitant]
     Active Substance: POTASSIUM CHLORIDE
  16. COUMADIN [Concomitant]
     Active Substance: WARFARIN SODIUM
  17. PREDNISONE. [Concomitant]
     Active Substance: PREDNISONE
  18. LORATADINE. [Concomitant]
     Active Substance: LORATADINE

REACTIONS (2)
  - Hypersomnia [Unknown]
  - Diarrhoea [Unknown]
